FAERS Safety Report 17295045 (Version 2)
Quarter: 2020Q2

REPORT INFORMATION
  Report Type: Spontaneous
  Country: US (occurrence: US)
  Receive Date: 20200121
  Receipt Date: 20200428
  Transmission Date: 20200713
  Serious: Yes (Other)
  Sender: FDA-Public Use
  Company Number: US-PFIZER INC-2020010714

PATIENT
  Age: 77 Year
  Sex: Male
  Weight: 83.91 kg

DRUGS (2)
  1. ROBITUSSIN MAXIMUM STRENGTH COUGH PLUS CHEST CONGESTION DM [Suspect]
     Active Substance: DEXTROMETHORPHAN HYDROBROMIDE\GUAIFENESIN
     Indication: NASOPHARYNGITIS
     Dosage: 20 MG, EVERY 4 HOURS
     Route: 048
     Dates: start: 20200106
  2. ROBITUSSIN MAXIMUM STRENGTH COUGH PLUS CHEST CONGESTION DM [Suspect]
     Active Substance: DEXTROMETHORPHAN HYDROBROMIDE\GUAIFENESIN
     Dosage: 20 ML, EVERY 4 HRS
     Route: 048
     Dates: start: 20200115, end: 20200117

REACTIONS (5)
  - Urinary retention [Recovering/Resolving]
  - Nasopharyngitis [Unknown]
  - Dysuria [Recovering/Resolving]
  - Bronchitis [Unknown]
  - Emphysema [Unknown]

NARRATIVE: CASE EVENT DATE: 20200115
